FAERS Safety Report 8833618 (Version 5)
Quarter: 2013Q3

REPORT INFORMATION
  Report Type: Spontaneous
  Country: US (occurrence: US)
  Receive Date: 20121010
  Receipt Date: 20130823
  Transmission Date: 20140515
  Serious: Yes (Other)
  Sender: FDA-Public Use
  Company Number: US-TEVA-363576USA

PATIENT
  Age: 24 Year
  Sex: Female
  Weight: 122.58 kg

DRUGS (1)
  1. PLAN B ONE-STEP [Suspect]
     Indication: POST COITAL CONTRACEPTION
     Dosage: 1.5 MILLIGRAM DAILY;
     Route: 048
     Dates: start: 20120904, end: 20120904

REACTIONS (3)
  - Pregnancy after post coital contraception [Unknown]
  - Depression [Unknown]
  - Drug ineffective [Unknown]
